FAERS Safety Report 7354101-9 (Version None)
Quarter: 2011Q1

REPORT INFORMATION
  Report Type: 
  Country: None (occurrence: None)
  Receive Date: 20110315
  Receipt Date: 20110308
  Transmission Date: 20110831
  Serious: Yes (Other)
  Sender: FDA-Public Use
  Company Number: PR-MERCK-1102USA02371

PATIENT
  Age: 68 Year
  Sex: Female
  Weight: 114 kg

DRUGS (3)
  1. SYNTHROID [Concomitant]
     Route: 048
  2. DYAZIDE [Concomitant]
     Route: 048
  3. VYTORIN [Suspect]
     Indication: BLOOD CHOLESTEROL INCREASED
     Route: 048
     Dates: start: 20090908, end: 20090909

REACTIONS (3)
  - ASTHMA [None]
  - HYPERSENSITIVITY [None]
  - SWELLING FACE [None]
